FAERS Safety Report 9324394 (Version 1)
Quarter: 2013Q2

REPORT INFORMATION
  Report Type: Spontaneous
  Country: CA (occurrence: CA)
  Receive Date: 20130603
  Receipt Date: 20130603
  Transmission Date: 20140414
  Serious: Yes (Other)
  Sender: FDA-Public Use
  Company Number: CA-TEVA-409505USA

PATIENT
  Age: 58 Year
  Sex: Female

DRUGS (4)
  1. CITALOPRAM [Suspect]
     Dosage: 10 MILLIGRAM DAILY;
     Route: 048
  2. CITALOPRAM [Suspect]
     Dosage: 20 MILLIGRAM DAILY;
     Route: 048
  3. SYNTHROID [Concomitant]
  4. PANTOPRAZOLE [Concomitant]

REACTIONS (2)
  - Feeling jittery [Unknown]
  - Palpitations [Unknown]
